FAERS Safety Report 13397062 (Version 11)
Quarter: 2017Q3

REPORT INFORMATION
  Report Type: Spontaneous
  Country: CA (occurrence: CA)
  Receive Date: 20170403
  Receipt Date: 20170731
  Transmission Date: 20171127
  Serious: Yes (Hospitalization, Other)
  Sender: FDA-Public Use
  Company Number: CA-CELLTRION INC.-2017CA003716

PATIENT

DRUGS (9)
  1. BENADRYL [Suspect]
     Active Substance: DIPHENHYDRAMINE HYDROCHLORIDE
     Indication: PRODUCT USED FOR UNKNOWN INDICATION
     Dosage: UNK
     Route: 042
  2. BUSCOPAN [Concomitant]
     Active Substance: BUTYLSCOPOLAMINE BROMIDE
     Dosage: 10 MG, TID (3X/DAY)
     Dates: start: 2017
  3. PREDNISONE. [Concomitant]
     Active Substance: PREDNISONE
     Dosage: 35 MG, 1X/DAY
     Dates: start: 20170227
  4. INFLECTRA [Suspect]
     Active Substance: INFLIXIMAB-DYYB
     Indication: COLITIS ULCERATIVE
     Dosage: 300 MG, CYCLIC (EVERY 0, 2, 6 WEEKS, THEN EVERY 8 WEEKS FOR 12 MONTHS)
     Route: 042
     Dates: start: 20170227
  5. 5-ASA [Concomitant]
     Active Substance: MESALAMINE
     Dosage: 4.8 G, UNK (FOR 4 MONTHS)
     Dates: start: 2016
  6. PENTASA [Concomitant]
     Active Substance: MESALAMINE
     Dosage: 1 G, QID (4X/DAY)
     Dates: start: 201611
  7. METHYLPREDNISOLONE. [Concomitant]
     Active Substance: METHYLPREDNISOLONE
     Dosage: 30 MG, BID 2X/DAY
     Dates: start: 201703
  8. SOLU-CORTEF [Suspect]
     Active Substance: HYDROCORTISONE SODIUM SUCCINATE
     Indication: PREMEDICATION
     Dosage: 100 MG, UNK
     Route: 042
  9. NYSTATIN. [Concomitant]
     Active Substance: NYSTATIN
     Dosage: 1 ML, TID (3X/DAY)
     Dates: start: 2015, end: 20170307

REACTIONS (18)
  - Anal incontinence [Unknown]
  - Quality of life decreased [Recovering/Resolving]
  - Haematochezia [Not Recovered/Not Resolved]
  - Pruritus [Unknown]
  - Abdominal pain lower [Unknown]
  - Dysphonia [Recovered/Resolved]
  - Drug effect incomplete [Unknown]
  - Mucous stools [Not Recovered/Not Resolved]
  - Constipation [Unknown]
  - Fatigue [Unknown]
  - Condition aggravated [Recovering/Resolving]
  - Incorrect drug administration rate [Unknown]
  - Wrong technique in product usage process [Unknown]
  - Abdominal pain [Recovered/Resolved]
  - Rash erythematous [Recovering/Resolving]
  - Throat tightness [Recovered/Resolved]
  - Back pain [Not Recovered/Not Resolved]
  - Weight increased [Unknown]

NARRATIVE: CASE EVENT DATE: 2017
